FAERS Safety Report 21124772 (Version 1)
Quarter: 2022Q3

REPORT INFORMATION
  Report Type: Spontaneous
  Country: US (occurrence: US)
  Receive Date: 20220725
  Receipt Date: 20220725
  Transmission Date: 20221027
  Serious: No
  Sender: FDA-Public Use
  Company Number: US-ORGANON-O2207USA001826

PATIENT
  Age: 16 Year
  Sex: Female
  Weight: 55.782 kg

DRUGS (2)
  1. NEXPLANON [Suspect]
     Active Substance: ETONOGESTREL
     Indication: Contraception
     Dosage: 1 IMPLANT OF 68 MG IN LET ARM
     Route: 059
     Dates: start: 20220413
  2. ACCUTANE [Concomitant]
     Active Substance: ISOTRETINOIN
     Indication: Contraception
     Dosage: UNK

REACTIONS (1)
  - Menstruation irregular [Not Recovered/Not Resolved]

NARRATIVE: CASE EVENT DATE: 20220505
